FAERS Safety Report 10298468 (Version 1)
Quarter: 2014Q3

REPORT INFORMATION
  Report Type: Spontaneous
  Country: US (occurrence: US)
  Receive Date: 20140711
  Receipt Date: 20140711
  Transmission Date: 20150326
  Serious: No
  Sender: FDA-Public Use
  Company Number: US-009507513-1407USA001560

PATIENT
  Age: 72 Year
  Sex: Female

DRUGS (2)
  1. MEVACOR [Suspect]
     Active Substance: LOVASTATIN
     Dosage: 40 MG, QD
     Route: 048
     Dates: end: 201404
  2. MEVACOR [Suspect]
     Active Substance: LOVASTATIN
     Dosage: 20 MG, QD
     Route: 048
     Dates: start: 2013

REACTIONS (1)
  - Amnesia [Unknown]

NARRATIVE: CASE EVENT DATE: 201404
